FAERS Safety Report 18689948 (Version 1)
Quarter: 2020Q4

REPORT INFORMATION
  Report Type: Spontaneous
  Country: FR (occurrence: FR)
  Receive Date: 20201231
  Receipt Date: 20201231
  Transmission Date: 20210114
  Serious: Yes (Hospitalization)
  Sender: FDA-Public Use
  Company Number: FR-TEVA-2020-FR-1863707

PATIENT
  Age: 83 Year
  Sex: Female

DRUGS (12)
  1. PARACETAMOL [Suspect]
     Active Substance: ACETAMINOPHEN
     Indication: PREMEDICATION
     Dosage: 3GRAM
     Route: 048
  2. NIVESTIM 30 MU/0,5 ML, SOLUTION INJECTABLE/POUR PERFUSION [Suspect]
     Active Substance: FILGRASTIM
     Dosage: ACCORDING TO BIOLOGY, 1 DOSAGE FORMS
     Route: 058
     Dates: start: 20200820
  3. RITUXIMAB ((MAMMIFERE/HAMSTER/CELLULES CHO)) [Suspect]
     Active Substance: RITUXIMAB
     Indication: B-CELL LYMPHOMA
     Dosage: 1400MG
     Route: 058
     Dates: start: 20200918, end: 20201106
  4. PREDNISONE. [Concomitant]
     Active Substance: PREDNISONE
     Indication: CHEMOTHERAPY SIDE EFFECT PROPHYLAXIS
     Dosage: 360MG
     Route: 048
     Dates: end: 20201109
  5. PAROXETINE. [Suspect]
     Active Substance: PAROXETINE
     Dosage: 20MG
     Route: 048
     Dates: start: 20200909, end: 20201203
  6. LANSOPRAZOLE. [Concomitant]
     Active Substance: LANSOPRAZOLE
     Indication: PREMEDICATION
     Dosage: 15MG
     Route: 048
     Dates: end: 20201109
  7. ZELITREX 500 MG, COMPRIME ENROBE [Suspect]
     Active Substance: VALACYCLOVIR HYDROCHLORIDE
     Dosage: 2 DOSAGE FORMS
     Route: 048
     Dates: start: 20200820
  8. CLAMOXYL 500 MG, GELULE (AMOXICILLIN TRIHYDRATE) [Suspect]
     Active Substance: AMOXICILLIN
     Dosage: 2 DOSAGE FORMS
     Route: 048
     Dates: start: 20200820, end: 20201203
  9. ETOPOSIDE. [Concomitant]
     Active Substance: ETOPOSIDE
     Indication: B-CELL LYMPHOMA
     Dosage: 450MG
     Route: 041
     Dates: start: 20200918, end: 20201108
  10. CYCLOPHOSPHAMIDE. [Concomitant]
     Active Substance: CYCLOPHOSPHAMIDE
     Indication: B-CELL LYMPHOMA
     Dosage: 750MG
     Route: 041
     Dates: start: 20200918, end: 20201108
  11. BINOCRIT [Suspect]
     Active Substance: ERYTHROPOIETIN
     Dosage: ACCORDING TO BIOLOGY, 1 DOSAGE FORMS
     Route: 051
     Dates: start: 20200820
  12. DEXCHLORPHENIRAMINE (MALEATE DE) [Concomitant]
     Active Substance: DEXCHLORPHENIRAMINE MALEATE
     Indication: PREMEDICATION
     Dosage: UNKNOWN
     Route: 051
     Dates: end: 20201106

REACTIONS (4)
  - Facial paralysis [Recovering/Resolving]
  - Seizure [Recovering/Resolving]
  - Electroencephalogram abnormal [Recovering/Resolving]
  - Aphasia [Recovering/Resolving]

NARRATIVE: CASE EVENT DATE: 20200930
